FAERS Safety Report 8429629-0 (Version None)
Quarter: 2012Q2

REPORT INFORMATION
  Report Type: 
  Country: None (occurrence: None)
  Receive Date: 20120612
  Receipt Date: 20120606
  Transmission Date: 20120825
  Serious: Yes (Death, Other)
  Sender: FDA-Public Use
  Company Number: DE-CELGENEUS-062-C5013-12051184

PATIENT
  Age: 71 Year
  Sex: Male
  Weight: 89 kg

DRUGS (4)
  1. LENALIDOMIDE [Suspect]
     Dosage: 25 MILLIGRAM
     Route: 048
     Dates: start: 20120215, end: 20120312
  2. DEXAMETHASONE [Suspect]
     Route: 065
     Dates: start: 20120215
  3. LENALIDOMIDE [Suspect]
     Indication: MULTIPLE MYELOMA
     Dosage: 25 MILLIGRAM
     Route: 048
     Dates: start: 20091028
  4. DEXAMETHASONE [Suspect]
     Indication: MULTIPLE MYELOMA
     Route: 065
     Dates: start: 20091028

REACTIONS (1)
  - MYELODYSPLASTIC SYNDROME [None]
